FAERS Safety Report 7928680-4 (Version None)
Quarter: 2011Q4

REPORT INFORMATION
  Report Type: 
  Country: None (occurrence: None)
  Receive Date: 20111118
  Receipt Date: 20110809
  Transmission Date: 20120403
  Serious: No
  Sender: FDA-Public Use
  Company Number: US-MYLANLABS-2011S1016655

PATIENT
  Age: 51 Year
  Sex: Male

DRUGS (1)
  1. SUMATRIPTAN SUCCINATE [Suspect]
     Indication: HEADACHE
     Route: 048
     Dates: start: 20081001

REACTIONS (3)
  - LISTLESS [None]
  - HEADACHE [None]
  - DRUG EFFECT DECREASED [None]
